FAERS Safety Report 24263071 (Version 4)
Quarter: 2024Q4

REPORT INFORMATION
  Report Type: Spontaneous
  Country: US (occurrence: US)
  Receive Date: 20240829
  Receipt Date: 20241121
  Transmission Date: 20250115
  Serious: No
  Sender: PFIZER
  Company Number: US-PFIZER INC-202400242255

PATIENT
  Age: 13 Year
  Sex: Male
  Weight: 29.48 kg

DRUGS (1)
  1. GENOTROPIN [Suspect]
     Active Substance: SOMATROPIN
     Indication: Growth disorder
     Dosage: 1MG, EVERY NIGHT BEFORE BED, INJECTION
     Route: 051
     Dates: start: 202406

REACTIONS (5)
  - Drug dose omission by device [Not Recovered/Not Resolved]
  - Wrong technique in device usage process [Unknown]
  - Device leakage [Unknown]
  - Device information output issue [Unknown]
  - Device malfunction [Unknown]

NARRATIVE: CASE EVENT DATE: 20240820
